FAERS Safety Report 6237407-6 (Version None)
Quarter: 2009Q2

REPORT INFORMATION
  Report Type: 
  Country: None (occurrence: None)
  Receive Date: 20090619
  Receipt Date: 20090615
  Transmission Date: 20091009
  Serious: Yes (Other)
  Sender: FDA-Public Use
  Company Number: BE-GILEAD-2009-0022627

PATIENT
  Age: 45 Year
  Sex: Female

DRUGS (4)
  1. TRUVADA [Suspect]
     Route: 048
     Dates: start: 20070924, end: 20090515
  2. STOCRIN [Concomitant]
     Route: 048
     Dates: start: 20070924, end: 20090515
  3. KALETRA [Concomitant]
     Dates: start: 20090515, end: 20090526
  4. COMBIVIR [Concomitant]
     Route: 048
     Dates: start: 20090515, end: 20090526

REACTIONS (1)
  - ABORTION SPONTANEOUS [None]
